FAERS Safety Report 15934240 (Version 1)
Quarter: 2019Q1

REPORT INFORMATION
  Report Type: Spontaneous
  Country: US (occurrence: US)
  Receive Date: 20190207
  Receipt Date: 20190207
  Transmission Date: 20190417
  Serious: No
  Sender: FDA-Public Use
  Company Number: US-PFIZER INC-2019048530

PATIENT
  Age: 60 Year
  Sex: Male
  Weight: 117.93 kg

DRUGS (2)
  1. ALPROSTADIL. [Suspect]
     Active Substance: ALPROSTADIL
     Dosage: 40 IU, UNK
  2. ALPROSTADIL. [Suspect]
     Active Substance: ALPROSTADIL
     Dosage: 10 IU, UNK

REACTIONS (1)
  - Drug ineffective [Unknown]
